FAERS Safety Report 9668091 (Version 1)
Quarter: 2013Q4

REPORT INFORMATION
  Report Type: Spontaneous
  Country: US (occurrence: BR)
  Receive Date: 20131104
  Receipt Date: 20131104
  Transmission Date: 20140711
  Serious: Yes (Hospitalization)
  Sender: FDA-Public Use
  Company Number: BR-FRI-1000050757

PATIENT
  Age: 75 Year
  Sex: Male
  Weight: 49 kg

DRUGS (5)
  1. ROFLUMILAST [Suspect]
     Indication: LUNG INFECTION
     Dosage: 1 DF
     Route: 048
     Dates: start: 20131021, end: 20131021
  2. BAMIFIX [Suspect]
     Indication: CHRONIC OBSTRUCTIVE PULMONARY DISEASE
     Dosage: 1 DF
     Route: 048
     Dates: start: 201304
  3. ONBRIZE [Concomitant]
     Dates: start: 20131015
  4. ATROVENT [Concomitant]
  5. BEROTEC [Concomitant]

REACTIONS (10)
  - Toxicity to various agents [Unknown]
  - Diarrhoea [Recovered/Resolved]
  - Drug interaction [Recovered/Resolved]
  - Candida infection [Unknown]
  - Pyrexia [Unknown]
  - Off label use [Unknown]
  - Insomnia [Not Recovered/Not Resolved]
  - Weight decreased [Unknown]
  - Nausea [Unknown]
  - Vomiting [Unknown]
